FAERS Safety Report 24761607 (Version 2)
Quarter: 2025Q1

REPORT INFORMATION
  Report Type: Spontaneous
  Country: US (occurrence: US)
  Receive Date: 20241220
  Receipt Date: 20250103
  Transmission Date: 20250409
  Serious: Yes (Other)
  Sender: PFIZER
  Company Number: US-PFIZER INC-PV202400164862

PATIENT
  Age: 36 Year
  Sex: Female
  Weight: 91.6 kg

DRUGS (6)
  1. IBRANCE [Suspect]
     Active Substance: PALBOCICLIB
     Indication: Breast cancer metastatic
     Dates: start: 202101
  2. IBRANCE [Suspect]
     Active Substance: PALBOCICLIB
     Route: 048
     Dates: start: 20230808
  3. ANASTROZOLE [Suspect]
     Active Substance: ANASTROZOLE
     Indication: Breast cancer metastatic
     Dosage: 1 MG, DAILY
     Route: 048
     Dates: start: 202101
  4. XGEVA [Suspect]
     Active Substance: DENOSUMAB
     Indication: Breast cancer metastatic
     Dosage: UNK, EVERY 3 MONTHS
  5. HYDRATION VITAMIN [Concomitant]
     Dates: start: 20240603, end: 20240603
  6. GOSERELIN [Concomitant]
     Active Substance: GOSERELIN

REACTIONS (6)
  - Oophorectomy bilateral [Unknown]
  - Cholecystectomy [Unknown]
  - Seizure [Recovered/Resolved]
  - Neoplasm progression [Not Recovered/Not Resolved]
  - Anxiety [Unknown]
  - Fatigue [Not Recovered/Not Resolved]

NARRATIVE: CASE EVENT DATE: 20210201
